FAERS Safety Report 10490858 (Version 1)
Quarter: 2014Q4

REPORT INFORMATION
  Report Type: Spontaneous
  Country: US (occurrence: US)
  Receive Date: 20141002
  Receipt Date: 20141002
  Transmission Date: 20150528
  Serious: No
  Sender: FDA-Public Use
  Company Number: US-GLAXOSMITHKLINE-A1042838A

PATIENT
  Age: 55 Year
  Sex: Female

DRUGS (3)
  1. IBUPROFEN. [Concomitant]
     Active Substance: IBUPROFEN
  2. VENTOLIN [Concomitant]
     Active Substance: ALBUTEROL SULFATE
  3. ADVAIR HFA [Suspect]
     Active Substance: FLUTICASONE PROPIONATE\SALMETEROL XINAFOATE
     Indication: CHRONIC OBSTRUCTIVE PULMONARY DISEASE
     Route: 065
     Dates: start: 20080101

REACTIONS (9)
  - Dyspnoea [Recovering/Resolving]
  - Throat irritation [Recovering/Resolving]
  - Drug dose omission [Unknown]
  - Respiratory tract congestion [Recovering/Resolving]
  - Dysgeusia [Unknown]
  - Product quality issue [Unknown]
  - Oropharyngeal pain [Recovering/Resolving]
  - Ill-defined disorder [Recovering/Resolving]
  - Drug ineffective [Recovering/Resolving]
